FAERS Safety Report 25239231 (Version 1)
Quarter: 2025Q2

REPORT INFORMATION
  Report Type: Spontaneous
  Country: GB (occurrence: GB)
  Receive Date: 20250425
  Receipt Date: 20250425
  Transmission Date: 20250716
  Serious: Yes (Hospitalization, Other)
  Sender: TEVA
  Company Number: GB-MYLANLABS-2025M1028169

PATIENT
  Sex: Male

DRUGS (4)
  1. OLANZAPINE [Suspect]
     Active Substance: OLANZAPINE
     Indication: Product used for unknown indication
     Dosage: DAILY DOSE: 20 MG DAILY
     Route: 065
  2. CLOZARIL [Suspect]
     Active Substance: CLOZAPINE
     Indication: Schizophrenia
     Route: 048
     Dates: start: 20070925, end: 20250321
  3. CLONIDINE [Concomitant]
     Active Substance: CLONIDINE
     Indication: Product used for unknown indication
     Route: 065
  4. VALPROATE SODIUM [Concomitant]
     Active Substance: VALPROATE SODIUM
     Indication: Product used for unknown indication
     Route: 042

REACTIONS (16)
  - Hyperkalaemia [Unknown]
  - Constipation [Unknown]
  - Dehydration [Unknown]
  - Compartment syndrome [Unknown]
  - Intestinal obstruction [Recovered/Resolved]
  - Septic shock [Not Recovered/Not Resolved]
  - Ischaemic hepatitis [Recovering/Resolving]
  - Liver injury [Recovering/Resolving]
  - Pneumonia aspiration [Unknown]
  - Acute kidney injury [Unknown]
  - Coagulopathy [Unknown]
  - Abdominal compartment syndrome [Unknown]
  - Faecaloma [Unknown]
  - Intestinal dilatation [Unknown]
  - Cardiac arrest [Unknown]
  - Rhabdomyolysis [Recovering/Resolving]

NARRATIVE: CASE EVENT DATE: 20250301
